FAERS Safety Report 9867506 (Version 2)
Quarter: 2014Q1

REPORT INFORMATION
  Report Type: Spontaneous
  Country: US (occurrence: US)
  Receive Date: 20140204
  Receipt Date: 20140204
  Transmission Date: 20141002
  Serious: No
  Sender: FDA-Public Use
  Company Number: US-GALDERMA-US13000154

PATIENT
  Age: 15 Year
  Sex: Female

DRUGS (2)
  1. EPIDUO (ADAPALENE, BENZOYL PEROXIDE) GEL 0.1% / 2.5% [Suspect]
     Indication: ACNE
     Route: 061
     Dates: start: 20121025, end: 201212
  2. MARY KAY FACIAL WASH [Concomitant]
     Indication: ACNE
     Route: 061

REACTIONS (4)
  - Acne [Unknown]
  - Erythema [Unknown]
  - Sunburn [Unknown]
  - Swelling face [Unknown]
